FAERS Safety Report 4473013-1 (Version None)
Quarter: 2004Q4

REPORT INFORMATION
  Report Type: 
  Country: None (occurrence: None)
  Receive Date: 20041013
  Receipt Date: 20041004
  Transmission Date: 20050328
  Serious: Yes (Hospitalization)
  Sender: FDA-Public Use
  Company Number: FR-BRISTOL-MYERS SQUIBB COMPANY-12729232

PATIENT
  Age: 52 Year
  Sex: Male
  Weight: 73 kg

DRUGS (6)
  1. APROVEL TABS [Suspect]
     Route: 048
  2. ALDACTONE [Suspect]
     Dosage: TEMP. STOPPED 01-APR-2004; RESTARTED ON UNK DATE (SAME DOSE)
     Route: 048
  3. LASILIX [Suspect]
     Dosage: TEMP. STOPPED 01-APR-2004; RESTARTED ON UNK DATE (SAME DOSE)
     Route: 048
  4. TRIATEC [Suspect]
     Dosage: DECREASED TO 1 TAB/D DURING THIS ADMISSION
     Route: 048
  5. FENOFIBRATE [Concomitant]
     Route: 048
     Dates: end: 20040608
  6. BISOPROLOL FUMARATE [Concomitant]
     Route: 048

REACTIONS (3)
  - HYPERTRIGLYCERIDAEMIA [None]
  - HYPONATRAEMIA [None]
  - RENAL FAILURE ACUTE [None]
